FAERS Safety Report 22975202 (Version 3)
Quarter: 2023Q4

REPORT INFORMATION
  Report Type: Report from Study
  Country: US (occurrence: US)
  Receive Date: 20230924
  Receipt Date: 20231209
  Transmission Date: 20240110
  Serious: No
  Sender: FDA-Public Use
  Company Number: US-SA-2023SA266602

PATIENT
  Sex: Male
  Weight: 104.5 kg

DRUGS (2)
  1. LIDOCAINE HYDROCHLORIDE [Suspect]
     Active Substance: DEXTROSE MONOHYDRATE\EPINEPHRINE\EPINEPHRINE BITARTRATE\LIDOCAINE\LIDOCAINE HYDROCHLORIDE\LIDOCAINE
     Indication: Procedural pain
     Dosage: 1%, 1 MG/KG, QH
     Route: 042
  2. BUPIVACAINE [Concomitant]
     Active Substance: BUPIVACAINE
     Dosage: 20 ML OF 0.5%
     Route: 042

REACTIONS (1)
  - Toxicity to various agents [Unknown]
